FAERS Safety Report 10041114 (Version 1)
Quarter: 2014Q1

REPORT INFORMATION
  Report Type: Spontaneous
  Country: US (occurrence: None)
  Receive Date: 20140326
  Receipt Date: 20140326
  Transmission Date: 20141002
  Serious: Yes (Other)
  Sender: FDA-Public Use
  Company Number: None

PATIENT
  Age: 26 Year
  Sex: Female

DRUGS (1)
  1. MAKENA [Suspect]
     Indication: PREMATURE LABOUR
     Dosage: 250MG QWK  IM?DATES OF USE: 1/30/14 - 2/30/14
     Route: 030
     Dates: start: 20140130

REACTIONS (1)
  - Injection site pain [None]
